FAERS Safety Report 25322930 (Version 1)
Quarter: 2025Q2

REPORT INFORMATION
  Report Type: Report from Study
  Country: CA (occurrence: CA)
  Receive Date: 20250516
  Receipt Date: 20250516
  Transmission Date: 20250716
  Serious: Yes (Hospitalization)
  Sender: ROCHE
  Company Number: CA-ROCHE-2564539

PATIENT
  Age: 24 Year
  Sex: Female
  Weight: 50.0 kg

DRUGS (10)
  1. ACTEMRA [Suspect]
     Active Substance: TOCILIZUMAB
     Indication: Still^s disease
     Route: 058
     Dates: start: 20151119, end: 2021
  2. ACTEMRA [Suspect]
     Active Substance: TOCILIZUMAB
     Route: 058
     Dates: start: 2021, end: 2024
  3. ACTEMRA [Suspect]
     Active Substance: TOCILIZUMAB
     Route: 058
     Dates: start: 2024, end: 20250411
  4. ACTEMRA [Suspect]
     Active Substance: TOCILIZUMAB
     Indication: Still^s disease
     Route: 042
     Dates: end: 20240424
  5. ACTEMRA [Suspect]
     Active Substance: TOCILIZUMAB
     Route: 042
  6. NAPROXEN [Concomitant]
     Active Substance: NAPROXEN
  7. DESONIDE [Concomitant]
     Active Substance: DESONIDE
     Indication: Dry skin
  8. FLUOXETINE [Concomitant]
     Active Substance: FLUOXETINE HYDROCHLORIDE
     Indication: Product used for unknown indication
  9. GABAPENTIN [Concomitant]
     Active Substance: GABAPENTIN
     Route: 048
     Dates: start: 2019
  10. PREDNISONE [Concomitant]
     Active Substance: PREDNISONE

REACTIONS (25)
  - Personality disorder [Unknown]
  - Pain [Unknown]
  - Inflammation [Unknown]
  - Mobility decreased [Unknown]
  - Arthropathy [Unknown]
  - Gait inability [Unknown]
  - Rheumatoid arthritis [Unknown]
  - Weight decreased [Unknown]
  - Joint range of motion decreased [Unknown]
  - Diarrhoea [Unknown]
  - Joint space narrowing [Unknown]
  - Bone marrow oedema [Unknown]
  - Rash erythematous [Unknown]
  - Rash macular [Unknown]
  - Headache [Unknown]
  - Drug ineffective [Unknown]
  - C-reactive protein increased [Recovering/Resolving]
  - Haemoglobin decreased [Unknown]
  - Blood smear test abnormal [Unknown]
  - Iron deficiency [Unknown]
  - Polycystic ovaries [Unknown]
  - Weight increased [Unknown]
  - Vomiting [Recovered/Resolved]
  - Blood pressure diastolic decreased [Unknown]
  - Hip arthroplasty [Unknown]

NARRATIVE: CASE EVENT DATE: 20160101
